FAERS Safety Report 10885844 (Version 2)
Quarter: 2015Q2

REPORT INFORMATION
  Report Type: Report from Study
  Country: US (occurrence: US)
  Receive Date: 20150304
  Receipt Date: 20150601
  Transmission Date: 20150821
  Serious: Yes (Other)
  Sender: FDA-Public Use
  Company Number: US-BAYER-2015-022351

PATIENT
  Age: 65 Year
  Sex: Male
  Weight: 64.4 kg

DRUGS (14)
  1. QUINAPRIL [Concomitant]
     Active Substance: QUINAPRIL\QUINAPRIL HYDROCHLORIDE
  2. COREG [Concomitant]
     Active Substance: CARVEDILOL
  3. ATIVAN [Concomitant]
     Active Substance: LORAZEPAM
  4. METAXALONE. [Concomitant]
     Active Substance: METAXALONE
  5. ACCUPRIL [Concomitant]
     Active Substance: QUINAPRIL HYDROCHLORIDE
  6. LANOXIN [Concomitant]
     Active Substance: DIGOXIN
  7. PERCOCET [Concomitant]
     Active Substance: ACETAMINOPHEN\OXYCODONE HYDROCHLORIDE
  8. DIGOXIN. [Concomitant]
     Active Substance: DIGOXIN
  9. OXYCONTIN [Concomitant]
     Active Substance: OXYCODONE HYDROCHLORIDE
  10. STIVARGA [Suspect]
     Active Substance: REGORAFENIB
     Indication: GASTROINTESTINAL STROMAL TUMOUR
     Dosage: 160 MG DAILY FOR 21 DAYS AND THEN 7 DAYS OFF
     Route: 048
     Dates: start: 20141119, end: 20150211
  11. CARVEDILOL. [Concomitant]
     Active Substance: CARVEDILOL
  12. FENTANYL. [Concomitant]
     Active Substance: FENTANYL
  13. OXYCODONE [Concomitant]
     Active Substance: OXYCODONE
  14. NORCO [Concomitant]
     Active Substance: ACETAMINOPHEN\HYDROCODONE BITARTRATE

REACTIONS (10)
  - Abasia [None]
  - Arthralgia [None]
  - Myalgia [None]
  - Weight decreased [None]
  - Hypoaesthesia [None]
  - Paraesthesia [None]
  - Adverse drug reaction [None]
  - Vomiting [None]
  - Nausea [None]
  - Blister [Not Recovered/Not Resolved]

NARRATIVE: CASE EVENT DATE: 20150221
